FAERS Safety Report 20116387 (Version 1)
Quarter: 2021Q4

REPORT INFORMATION
  Report Type: Spontaneous
  Country: ES (occurrence: ES)
  Receive Date: 20211126
  Receipt Date: 20211126
  Transmission Date: 20220303
  Serious: Yes (Other)
  Sender: FDA-Public Use
  Company Number: ES-ORGANON-O2111ESP002601

PATIENT
  Sex: Female

DRUGS (2)
  1. RIZATRIPTAN BENZOATE [Suspect]
     Active Substance: RIZATRIPTAN BENZOATE
     Dosage: UNK,RAPDISC
     Route: 048
     Dates: start: 2018
  2. COMIRNATY [Suspect]
     Active Substance: TOZINAMERAN
     Indication: COVID-19 immunisation
     Dosage: SINGLE DOSE (BNT162B2)
     Route: 030
     Dates: start: 20210114, end: 20210114

REACTIONS (5)
  - Hemiparaesthesia [Not Recovered/Not Resolved]
  - Headache [Not Recovered/Not Resolved]
  - Migraine [Recovered/Resolved]
  - Vertigo [Unknown]
  - Vertigo [Unknown]

NARRATIVE: CASE EVENT DATE: 20180101
